FAERS Safety Report 9204443 (Version 1)
Quarter: 2013Q2

REPORT INFORMATION
  Report Type: Spontaneous
  Country: US (occurrence: None)
  Receive Date: 20130401
  Receipt Date: 20130401
  Transmission Date: 20140414
  Serious: Yes (Hospitalization)
  Sender: FDA-Public Use
  Company Number: None

PATIENT
  Age: 88 Year
  Sex: Male
  Weight: 53.8 kg

DRUGS (1)
  1. DENOSUMAB [Suspect]
     Indication: PROSTATE CANCER
     Dosage: SQ
     Route: 058
     Dates: start: 20130201, end: 20130201

REACTIONS (4)
  - Constipation [None]
  - Hypocalcaemia [None]
  - Electrocardiogram QT prolonged [None]
  - Abdominal pain [None]
